FAERS Safety Report 23409576 (Version 1)
Quarter: 2024Q1

REPORT INFORMATION
  Report Type: Spontaneous
  Country: CN (occurrence: CN)
  Receive Date: 20240117
  Receipt Date: 20240117
  Transmission Date: 20240410
  Serious: Yes (Hospitalization)
  Sender: FDA-Public Use
  Company Number: CN-ANIPHARMA-2024-CN-000018

PATIENT
  Age: 80 Year
  Sex: Male
  Weight: 61 kg

DRUGS (2)
  1. BICALUTAMIDE [Suspect]
     Active Substance: BICALUTAMIDE
     Indication: Prostate cancer
     Dosage: 50 MG DAILY
     Route: 048
     Dates: start: 20211214, end: 20231226
  2. GOSERELIN ACETATE [Suspect]
     Active Substance: GOSERELIN ACETATE
     Dosage: DOSE TEXT: ONCE EVERY 12 WEEKS
     Route: 058
     Dates: start: 20220309, end: 20231121

REACTIONS (3)
  - Peripheral nerve injury [Recovering/Resolving]
  - Breast discomfort [Recovering/Resolving]
  - Neuropathy peripheral [Unknown]

NARRATIVE: CASE EVENT DATE: 20231116
